FAERS Safety Report 5149360-7 (Version None)
Quarter: 2006Q4

REPORT INFORMATION
  Report Type: 
  Country: None (occurrence: None)
  Receive Date: 20061113
  Receipt Date: 20051118
  Transmission Date: 20070319
  Serious: No
  Sender: FDA-Public Use
  Company Number: 425476

PATIENT
  Sex: Male

DRUGS (8)
  1. COREG [Suspect]
     Indication: MYOCARDIAL INFARCTION
     Dosage: .5TAB TWICE PER DAY
     Route: 048
  2. METFORMIN [Concomitant]
  3. LIPITOR [Concomitant]
  4. FUROSEMIDE [Concomitant]
  5. LISINOPRIL [Concomitant]
  6. GLYBURIDE [Concomitant]
  7. THYROID TAB [Concomitant]
  8. ULTRACET [Concomitant]

REACTIONS (1)
  - WRONG TECHNIQUE IN DRUG USAGE PROCESS [None]
